FAERS Safety Report 13049865 (Version 1)
Quarter: 2016Q4

REPORT INFORMATION
  Report Type: Spontaneous
  Country: US (occurrence: US)
  Receive Date: 20161221
  Receipt Date: 20161221
  Transmission Date: 20170207
  Serious: Yes (Other)
  Sender: FDA-Public Use
  Company Number: US-PROCTER+GAMBLE-GS16149629

PATIENT
  Age: 73 Year
  Sex: Female

DRUGS (1)
  1. METAMUCIL [Suspect]
     Active Substance: PLANTAGO SEED
     Dosage: 0.25 TSP, 1 ONLY
     Route: 048

REACTIONS (5)
  - Lip swelling [Recovered/Resolved]
  - Swollen tongue [Recovered/Resolved]
  - Swelling face [Recovered/Resolved]
  - Pruritus [Recovered/Resolved]
  - Hypersensitivity [Recovered/Resolved]
